FAERS Safety Report 14607294 (Version 1)
Quarter: 2018Q1

REPORT INFORMATION
  Report Type: Spontaneous
  Country: US (occurrence: US)
  Receive Date: 20180307
  Receipt Date: 20180307
  Transmission Date: 20180509
  Serious: No
  Sender: FDA-Public Use
  Company Number: US-PFIZER INC-2018092953

PATIENT
  Age: 64 Year
  Sex: Female
  Weight: 98 kg

DRUGS (6)
  1. XELJANZ XR [Suspect]
     Active Substance: TOFACITINIB CITRATE
     Indication: RHEUMATOID ARTHRITIS
     Dosage: 11 MG, UNK
  2. LEVOTHYROXINE. [Concomitant]
     Active Substance: LEVOTHYROXINE
     Indication: BASEDOW^S DISEASE
     Dosage: 137 UG, 1X/DAY (HAD BEEN TAKING THAT FOR YEARS. IT MUST HAD BEEN 25 YEARS. IT MIGHT BE MORE)
  3. AMLODIPINE [Concomitant]
     Active Substance: AMLODIPINE BESYLATE
     Indication: BLOOD PRESSURE ABNORMAL
     Dosage: 10 MG, UNK (STARTED TAKING IT LAST YEAR)
  4. LEVOTHYROXINE. [Concomitant]
     Active Substance: LEVOTHYROXINE
     Indication: HYPERTHYROIDISM
  5. LISINOPRIL. [Concomitant]
     Active Substance: LISINOPRIL
     Indication: BLOOD PRESSURE ABNORMAL
     Dosage: UNK (20-25 MG)
  6. NAPROXEN SODIUM. [Concomitant]
     Active Substance: NAPROXEN SODIUM
     Indication: PAIN
     Dosage: 500 MG, AS NEEDED (CAN TAKE UP TO 3 TIMES A DAY. BUT SHE DID NOT TAKE UNLESS SHE REALLY NEED IT)

REACTIONS (4)
  - Pain in extremity [Unknown]
  - Body height decreased [Unknown]
  - Arthralgia [Unknown]
  - Pain [Unknown]
